FAERS Safety Report 5157404-1 (Version None)
Quarter: 2006Q4

REPORT INFORMATION
  Report Type: 
  Country: None (occurrence: None)
  Receive Date: 20061116
  Receipt Date: 20061103
  Transmission Date: 20070319
  Serious: Yes (Other)
  Sender: FDA-Public Use
  Company Number: 06-001268

PATIENT
  Age: 40 Year
  Sex: Female
  Weight: 75.7 kg

DRUGS (2)
  1. ESTROSTEP FE [Suspect]
     Indication: CONTRACEPTION
     Dosage: 20-30-35/1000 UG, QD, ORAL
     Route: 048
     Dates: start: 20040101, end: 20061021
  2. MULTIVITAMIN /00831701/ (VITAMINS NOS) [Concomitant]

REACTIONS (5)
  - BACTERIAL INFECTION [None]
  - MIGRAINE [None]
  - PELVIC PAIN [None]
  - UTERINE LEIOMYOMA [None]
  - VAGINAL INFECTION [None]
